FAERS Safety Report 4828266-4 (Version None)
Quarter: 2005Q4

REPORT INFORMATION
  Report Type: 
  Country: None (occurrence: None)
  Receive Date: 20051114
  Receipt Date: 20051114
  Transmission Date: 20060501
  Serious: Yes (Other)
  Sender: FDA-Public Use
  Company Number: None

PATIENT
  Age: 65 Year
  Sex: Male
  Weight: 102 kg

DRUGS (2)
  1. ASPIRIN [Suspect]
     Indication: CARDIOVASCULAR EVENT PROPHYLAXIS
     Dosage: 81 MG PO QD
     Route: 048
     Dates: start: 20050127
  2. ASPIRIN [Suspect]
     Indication: CARDIOVASCULAR EVENT PROPHYLAXIS
     Dosage: 81 MG PO QD
     Route: 048
     Dates: start: 20050719

REACTIONS (5)
  - BIOPSY SITE UNSPECIFIED ABNORMAL [None]
  - GASTROINTESTINAL ULCER [None]
  - HIATUS HERNIA [None]
  - INFLAMMATION [None]
  - OCCULT BLOOD POSITIVE [None]
